FAERS Safety Report 23518718 (Version 1)
Quarter: 2024Q1

REPORT INFORMATION
  Report Type: Spontaneous
  Country: CN (occurrence: CN)
  Receive Date: 20240213
  Receipt Date: 20240213
  Transmission Date: 20240410
  Serious: Yes (Other)
  Sender: FDA-Public Use
  Company Number: CN-PFIZER INC-PV202400019819

PATIENT
  Age: 48 Year
  Sex: Male
  Weight: 77.65 kg

DRUGS (2)
  1. CYTARABINE [Suspect]
     Active Substance: CYTARABINE
     Indication: Acute lymphocytic leukaemia
     Dosage: 3.5 G, 2X/DAY, DRIP RATE WAS ABOUT 167ML/H
     Route: 041
     Dates: start: 20240130, end: 20240131
  2. SODIUM CHLORIDE [Concomitant]
     Active Substance: SODIUM CHLORIDE
     Indication: Acute lymphocytic leukaemia
     Dosage: 500 ML, 2X/DAY,DRIP RATE WAS ABOUT 167ML/H
     Route: 041
     Dates: start: 20240130, end: 20240131

REACTIONS (1)
  - Oxygen saturation decreased [Recovering/Resolving]

NARRATIVE: CASE EVENT DATE: 20240131
